FAERS Safety Report 15764620 (Version 2)
Quarter: 2019Q1

REPORT INFORMATION
  Report Type: Report from Study
  Country: None (occurrence: CA)
  Receive Date: 20181227
  Receipt Date: 20190109
  Transmission Date: 20190417
  Serious: Yes (Hospitalization)
  Sender: FDA-Public Use
  Company Number: CA-ABBVIE-18K-028-2603988-00

PATIENT
  Sex: Female

DRUGS (2)
  1. ENTOCORT [Suspect]
     Active Substance: BUDESONIDE
     Indication: RECTAL HAEMORRHAGE
     Route: 065
     Dates: start: 201811
  2. HUMIRA [Suspect]
     Active Substance: ADALIMUMAB
     Indication: CROHN^S DISEASE
     Route: 058
     Dates: start: 20180320

REACTIONS (3)
  - Rosacea [Not Recovered/Not Resolved]
  - Haemorrhoids [Unknown]
  - Back pain [Not Recovered/Not Resolved]

NARRATIVE: CASE EVENT DATE: 2018
